FAERS Safety Report 7445598-4 (Version None)
Quarter: 2011Q2

REPORT INFORMATION
  Report Type: 
  Country: None (occurrence: None)
  Receive Date: 20110429
  Receipt Date: 20110420
  Transmission Date: 20111010
  Serious: Yes (Other)
  Sender: FDA-Public Use
  Company Number: FR-TEVA-276523ISR

PATIENT
  Age: 35 Year
  Sex: Male

DRUGS (2)
  1. COPAXONE [Suspect]
     Indication: RELAPSING-REMITTING MULTIPLE SCLEROSIS
     Dates: start: 20100101
  2. CORTICOSTEROIDS [Suspect]
     Indication: MULTIPLE SCLEROSIS RELAPSE

REACTIONS (2)
  - OSTEONECROSIS [None]
  - MULTIPLE SCLEROSIS RELAPSE [None]
